FAERS Safety Report 4456850-9 (Version None)
Quarter: 2004Q3

REPORT INFORMATION
  Report Type: 
  Country: None (occurrence: None)
  Receive Date: 20040921
  Receipt Date: 20040910
  Transmission Date: 20050211
  Serious: Yes (Disabling)
  Sender: FDA-Public Use
  Company Number: 02100-USA-04-0348

PATIENT
  Sex: Male

DRUGS (1)
  1. PLETAL [Suspect]
     Indication: PROMOTION OF PERIPHERAL CIRCULATION
     Dosage: 100 MG DAILY ORAL
     Route: 048
     Dates: start: 20000701, end: 20001001

REACTIONS (1)
  - RENAL FAILURE [None]
